FAERS Safety Report 22114855 (Version 1)
Quarter: 2023Q1

REPORT INFORMATION
  Report Type: Spontaneous
  Country: FR (occurrence: FR)
  Receive Date: 20230320
  Receipt Date: 20230320
  Transmission Date: 20230417
  Serious: Yes (Hospitalization)
  Sender: FDA-Public Use
  Company Number: None

PATIENT
  Age: 80 Year
  Sex: Female

DRUGS (3)
  1. GANCICLOVIR [Suspect]
     Active Substance: GANCICLOVIR
     Indication: Cytomegalovirus oesophagitis
     Dosage: 2 TO 3 WEEKS AS INITIAL TREATMENT, THEN SEE ABOUT MAINTENANCE TREATMENT THEREAFTER WITH 2.5MG/KG/D
     Route: 042
     Dates: start: 20230215
  2. GANCICLOVIR [Suspect]
     Active Substance: GANCICLOVIR
     Indication: Cytomegalovirus oesophagitis
     Dosage: DAILY DOSE: 2.5 MILLIGRAM
     Route: 042
     Dates: start: 20230218
  3. GANCICLOVIR [Suspect]
     Active Substance: GANCICLOVIR
     Indication: Cytomegalovirus oesophagitis
     Dosage: RESUMPTION OF 2.5MG/KG EVERY 12 H?DAILY DOSE: 10 MILLIGRAM/KG
     Dates: start: 20230219, end: 20230219

REACTIONS (2)
  - Skin irritation [Not Recovered/Not Resolved]
  - Extravasation [Not Recovered/Not Resolved]

NARRATIVE: CASE EVENT DATE: 20230219
